FAERS Safety Report 17745064 (Version 2)
Quarter: 2020Q2

REPORT INFORMATION
  Report Type: Spontaneous
  Country: US (occurrence: US)
  Receive Date: 20200504
  Receipt Date: 20200605
  Transmission Date: 20200714
  Serious: No
  Sender: FDA-Public Use
  Company Number: US-ACTELION-A-US2020-204837

PATIENT
  Age: 42 Year
  Sex: Female
  Weight: 122.45 kg

DRUGS (5)
  1. XARELTO [Concomitant]
     Active Substance: RIVAROXABAN
  2. AMLODIPINE [Concomitant]
     Active Substance: AMLODIPINE BESYLATE
  3. UPTRAVI [Concomitant]
     Active Substance: SELEXIPAG
  4. TADALAFIL. [Concomitant]
     Active Substance: TADALAFIL
  5. OPSUMIT [Suspect]
     Active Substance: MACITENTAN
     Indication: PULMONARY HYPERTENSION
     Dosage: 10 MG, QD
     Route: 048

REACTIONS (8)
  - Dry mouth [Unknown]
  - Concomitant disease aggravated [Unknown]
  - Extrasystoles [Unknown]
  - Peripheral swelling [Unknown]
  - Pyrexia [Unknown]
  - Dyschezia [Unknown]
  - Haematochezia [Unknown]
  - Malaise [Unknown]

NARRATIVE: CASE EVENT DATE: 202004
